FAERS Safety Report 20492757 (Version 1)
Quarter: 2022Q1

REPORT INFORMATION
  Report Type: Spontaneous
  Country: US (occurrence: US)
  Receive Date: 20220219
  Receipt Date: 20220219
  Transmission Date: 20220423
  Serious: No
  Sender: FDA-Public Use
  Company Number: US-TAKEDA-2022TUS009211

PATIENT
  Sex: Female
  Weight: 46.5 kg

DRUGS (4)
  1. VELCADE [Suspect]
     Active Substance: BORTEZOMIB
     Indication: Plasma cell myeloma
     Dosage: 1 MILLIGRAM, 2/WEEK
     Route: 065
     Dates: start: 202201
  2. DEXAMETHASONE [Concomitant]
     Active Substance: DEXAMETHASONE
     Dosage: UNK
     Route: 065
     Dates: start: 20220104
  3. REVLIMID [Concomitant]
     Active Substance: LENALIDOMIDE
     Dosage: UNK
     Route: 065
     Dates: start: 20220202
  4. VITAMIN C [Concomitant]
     Active Substance: ASCORBIC ACID
     Dosage: UNK
     Route: 065
     Dates: end: 20211220

REACTIONS (6)
  - Feeling abnormal [Unknown]
  - Memory impairment [Unknown]
  - Disturbance in attention [Unknown]
  - Weight decreased [Unknown]
  - Blood pressure decreased [Unknown]
  - Decreased appetite [Unknown]
